FAERS Safety Report 7686090-1 (Version None)
Quarter: 2011Q3

REPORT INFORMATION
  Report Type: 
  Country: None (occurrence: None)
  Receive Date: 20110816
  Receipt Date: 20110809
  Transmission Date: 20111222
  Serious: Yes (Other)
  Sender: FDA-Public Use
  Company Number: US-PFIZER INC-2011176619

PATIENT
  Sex: Male
  Weight: 104 kg

DRUGS (3)
  1. TOVIAZ [Suspect]
     Dosage: 4 MG, 1X/DAY
     Dates: start: 20110701
  2. TOVIAZ [Suspect]
     Indication: MICTURITION DISORDER
     Dosage: 8 MG, 1X/DAY
     Route: 048
     Dates: start: 20110701
  3. ATACAND [Concomitant]
     Dosage: UNK

REACTIONS (5)
  - POLLAKIURIA [None]
  - URINARY RETENTION [None]
  - DRUG INEFFECTIVE [None]
  - NOCTURIA [None]
  - INSOMNIA [None]
